FAERS Safety Report 18124548 (Version 2)
Quarter: 2020Q3

REPORT INFORMATION
  Report Type: Spontaneous
  Country: US (occurrence: US)
  Receive Date: 20200807
  Receipt Date: 20200812
  Transmission Date: 20201103
  Serious: No
  Sender: FDA-Public Use
  Company Number: US-PFIZER INC-2020295064

PATIENT
  Age: 70 Year
  Sex: Female
  Weight: 107.94 kg

DRUGS (1)
  1. IBRANCE [Suspect]
     Active Substance: PALBOCICLIB
     Indication: BREAST CANCER
     Dosage: 75 MG
     Route: 048
     Dates: start: 20200630

REACTIONS (3)
  - Dysphagia [Unknown]
  - Taste disorder [Unknown]
  - Abdominal discomfort [Unknown]
